FAERS Safety Report 5366144-5 (Version None)
Quarter: 2007Q2

REPORT INFORMATION
  Report Type: 
  Country: None (occurrence: None)
  Receive Date: 20070530
  Receipt Date: 20070319
  Transmission Date: 20071010
  Serious: No
  Sender: FDA-Public Use
  Company Number: 2005PV003411

PATIENT
  Age: 76 Year
  Sex: Female
  Weight: 61.2356 kg

DRUGS (9)
  1. BYETTA [Suspect]
     Indication: DIABETES MELLITUS NON-INSULIN-DEPENDENT
     Dosage: 5 MCG;BID;SC  10 MCG;BID;SC  5 MCG;BID;SC  5 MCG;BID;SC
     Route: 058
     Dates: start: 20060101, end: 20060101
  2. BYETTA [Suspect]
     Indication: DIABETES MELLITUS NON-INSULIN-DEPENDENT
     Dosage: 5 MCG;BID;SC  10 MCG;BID;SC  5 MCG;BID;SC  5 MCG;BID;SC
     Route: 058
     Dates: start: 20060101, end: 20061101
  3. BYETTA [Suspect]
     Indication: DIABETES MELLITUS NON-INSULIN-DEPENDENT
     Dosage: 5 MCG;BID;SC  10 MCG;BID;SC  5 MCG;BID;SC  5 MCG;BID;SC
     Route: 058
     Dates: start: 20051009
  4. BYETTA [Suspect]
     Indication: DIABETES MELLITUS NON-INSULIN-DEPENDENT
     Dosage: 5 MCG;BID;SC  10 MCG;BID;SC  5 MCG;BID;SC  5 MCG;BID;SC
     Route: 058
     Dates: start: 20061101
  5. BYETTA [Suspect]
  6. ACTOS [Concomitant]
  7. GLUCOTROL [Concomitant]
  8. GLUCOPHAGE [Concomitant]
  9. GLIPIZIDE [Concomitant]

REACTIONS (10)
  - ABDOMINAL PAIN UPPER [None]
  - BLOOD GLUCOSE DECREASED [None]
  - BOWEL MOVEMENT IRREGULARITY [None]
  - BOWEL SOUNDS ABNORMAL [None]
  - DECREASED APPETITE [None]
  - DIZZINESS [None]
  - FAECES HARD [None]
  - THERAPEUTIC RESPONSE UNEXPECTED [None]
  - VISION BLURRED [None]
  - WEIGHT DECREASED [None]
